FAERS Safety Report 6985674-3 (Version None)
Quarter: 2010Q3

REPORT INFORMATION
  Report Type: 
  Country: None (occurrence: None)
  Receive Date: 20100915
  Receipt Date: 20100909
  Transmission Date: 20110219
  Serious: Yes (Hospitalization)
  Sender: FDA-Public Use
  Company Number: FR-WYE-G06643710

PATIENT
  Sex: Male

DRUGS (3)
  1. EFFEXOR XR [Suspect]
     Indication: DEPRESSION
     Route: 048
     Dates: start: 20100701
  2. ABILIFY [Suspect]
     Indication: AFFECTIVE DISORDER
     Route: 048
     Dates: start: 20100702
  3. LIORESAL [Suspect]
     Indication: ALCOHOLISM
     Dosage: UNKNOWN DOSE FROM JUL-2010 PROGRESSIVELY INCREASED TO 120 MG DAILY UNTIL 15-JUL-2010
     Route: 048

REACTIONS (4)
  - BLADDER DILATATION [None]
  - CONDITION AGGRAVATED [None]
  - DYSURIA [None]
  - EJACULATION FAILURE [None]
